FAERS Safety Report 13841023 (Version 2)
Quarter: 2017Q3

REPORT INFORMATION
  Report Type: Spontaneous
  Country: AU (occurrence: AU)
  Receive Date: 20170807
  Receipt Date: 20170823
  Transmission Date: 20171127
  Serious: Yes (Death)
  Sender: FDA-Public Use
  Company Number: AU-FERRINGPH-2017FE03707

PATIENT
  Age: 2 Year
  Sex: Female
  Weight: 19.5 kg

DRUGS (4)
  1. LEVOTHYROXINE. [Concomitant]
     Active Substance: LEVOTHYROXINE
     Dosage: 37.5 ?G, DAILY
     Route: 048
     Dates: start: 20150505, end: 20170517
  2. DESMOPRESSIN [Suspect]
     Active Substance: DESMOPRESSIN
     Indication: PRODUCT USED FOR UNKNOWN INDICATION
     Dosage: 30 ?G, 3 TIMES DAILY
     Route: 048
     Dates: start: 20150601, end: 20170517
  3. HYDROCORTISONE. [Concomitant]
     Active Substance: HYDROCORTISONE
     Dosage: 7 MG, DAILY
     Route: 048
     Dates: start: 20150429, end: 20170517
  4. NORDITROPIN [Concomitant]
     Active Substance: SOMATROPIN
     Dosage: 0.5 MG, DAILY
     Route: 058
     Dates: start: 20150604, end: 20170517

REACTIONS (3)
  - Product preparation error [Unknown]
  - Adrenocortical insufficiency acute [Fatal]
  - Medication error [Unknown]

NARRATIVE: CASE EVENT DATE: 20170516
